FAERS Safety Report 4458426-6 (Version None)
Quarter: 2004Q3

REPORT INFORMATION
  Report Type: 
  Country: None (occurrence: None)
  Receive Date: 20040922
  Receipt Date: 20040910
  Transmission Date: 20050211
  Serious: Yes (Death)
  Sender: FDA-Public Use
  Company Number: 04P-167-0269105-01

PATIENT
  Age: 49 Year
  Sex: Female

DRUGS (4)
  1. HUMIRA [Suspect]
     Indication: RHEUMATOID ARTHRITIS
     Dosage: 40 MG, 1 IN 2 WK, SUBCUTANEOUS
     Route: 058
     Dates: start: 20040312
  2. LEVOTHYROXINE SODIUM [Concomitant]
  3. ARTHROTEC [Concomitant]
  4. PREDNISOLONE [Concomitant]

REACTIONS (3)
  - ACUTE LEFT VENTRICULAR FAILURE [None]
  - CORONARY ARTERY ATHEROSCLEROSIS [None]
  - SUDDEN DEATH [None]
